FAERS Safety Report 5712126-0 (Version None)
Quarter: 2008Q2

REPORT INFORMATION
  Report Type: 
  Country: None (occurrence: None)
  Receive Date: 20080418
  Receipt Date: 20080407
  Transmission Date: 20081010
  Serious: Yes (Hospitalization, Other)
  Sender: FDA-Public Use
  Company Number: 2007SP016093

PATIENT
  Age: 62 Year
  Sex: Male

DRUGS (11)
  1. CORICIDIN COUGH + COLD [Suspect]
     Indication: POSTNASAL DRIP
     Dosage: ONCE;PO
     Route: 048
     Dates: start: 20070726, end: 20070727
  2. STUDY DRUG [Suspect]
     Indication: DRUG USE FOR UNKNOWN INDICATION
     Dosage: TID PO
     Route: 048
     Dates: start: 20070217
  3. NORPACE [Concomitant]
  4. SINGULAIR [Concomitant]
  5. VITAMIN CAP [Concomitant]
  6. VITAMIN B-12 [Concomitant]
  7. BENZONATATE [Concomitant]
  8. PROTONIX [Concomitant]
  9. SILDENAFIL CITRATE [Suspect]
     Indication: DRUG USE FOR UNKNOWN INDICATION
  10. TOPROL-XL [Suspect]
     Indication: DRUG USE FOR UNKNOWN INDICATION
  11. VERAPAMIL [Suspect]
     Indication: DRUG USE FOR UNKNOWN INDICATION

REACTIONS (10)
  - ASTHENIA [None]
  - CONDITION AGGRAVATED [None]
  - HEART RATE DECREASED [None]
  - HYPERTROPHIC CARDIOMYOPATHY [None]
  - HYPOTENSION [None]
  - LOSS OF CONSCIOUSNESS [None]
  - OFF LABEL USE [None]
  - POST PROCEDURAL INFECTION [None]
  - PULMONARY OEDEMA [None]
  - SYNCOPE [None]
